FAERS Safety Report 8817915 (Version 1)
Quarter: 2012Q4

REPORT INFORMATION
  Report Type: 
  Country: CA (occurrence: CA)
  Receive Date: 20121004
  Receipt Date: 20121004
  Transmission Date: 20130627
  Serious: Yes (Hospitalization)
  Sender: FDA-Public Use
  Company Number: PHHY2007CA011732

PATIENT
  Age: 73 Year
  Sex: Male

DRUGS (1)
  1. EXJADE [Suspect]
     Indication: IRON OVERLOAD
     Dosage: 1500 mg, UNK
     Route: 048
     Dates: start: 20070309, end: 20070410

REACTIONS (1)
  - Decreased appetite [Not Recovered/Not Resolved]
